FAERS Safety Report 7959755-1 (Version None)
Quarter: 2011Q4

REPORT INFORMATION
  Report Type: 
  Country: None (occurrence: None)
  Receive Date: 20111206
  Receipt Date: 20111125
  Transmission Date: 20120403
  Serious: Yes (Hospitalization)
  Sender: FDA-Public Use
  Company Number: FR-GLAXOSMITHKLINE-B0765112A

PATIENT
  Sex: Male

DRUGS (7)
  1. NEBIVOLOL HCL [Concomitant]
     Dosage: 5MG PER DAY
     Route: 048
  2. ARIXTRA [Suspect]
     Indication: THROMBOSIS PROPHYLAXIS
     Dosage: 2.5MG PER DAY
     Route: 058
     Dates: start: 20110919, end: 20111005
  3. HUMALOG [Concomitant]
     Route: 058
  4. ATORVASTATIN CALCIUM [Concomitant]
     Route: 048
  5. ASPIRIN [Suspect]
     Indication: CORONARY ARTERY BYPASS
     Dosage: 75MG PER DAY
     Route: 048
     Dates: start: 20110701, end: 20111005
  6. LANTUS [Concomitant]
     Route: 058
  7. LASIX [Concomitant]
     Dosage: 40MG PER DAY
     Route: 048

REACTIONS (4)
  - SUBDURAL HAEMATOMA [None]
  - AGITATION [None]
  - HEMIPARESIS [None]
  - HEADACHE [None]
